FAERS Safety Report 5197168-9 (Version None)
Quarter: 2007Q1

REPORT INFORMATION
  Report Type: 
  Country: None (occurrence: None)
  Receive Date: 20070103
  Receipt Date: 20061220
  Transmission Date: 20070707
  Serious: Yes (Hospitalization)
  Sender: FDA-Public Use
  Company Number: AT-GLAXOSMITHKLINE-B0452191A

PATIENT
  Age: 67 Year
  Sex: Female
  Weight: 110 kg

DRUGS (10)
  1. ARIXTRA [Suspect]
     Indication: THROMBOSIS PROPHYLAXIS
     Route: 058
     Dates: start: 20061201, end: 20061208
  2. ENOXAPARIN SODIUM [Concomitant]
     Indication: THROMBOSIS PROPHYLAXIS
     Dosage: 40MG PER DAY
     Route: 058
     Dates: start: 20061104
  3. DICLOFENAC SODIUM [Concomitant]
     Indication: PAIN
     Dosage: 50MG TWICE PER DAY
     Dates: start: 20061207
  4. EUTHYROX [Concomitant]
     Dosage: 75MCG IN THE MORNING
  5. ENALAPRIL MALEATE [Concomitant]
     Dosage: 10MG TWICE PER DAY
  6. AMLODIPINE [Concomitant]
     Dosage: 5MG IN THE MORNING
  7. CITALOPRAM HYDROBROMIDE [Concomitant]
     Dosage: 20MG IN THE MORNING
  8. SAROTEN [Concomitant]
     Dosage: .5TAB AT NIGHT
  9. RANITIDINE [Concomitant]
     Dosage: 300MG AT NIGHT
  10. HYDAL [Concomitant]
     Dosage: 1TAB TWICE PER DAY

REACTIONS (4)
  - ABDOMINAL DISCOMFORT [None]
  - CARDIAC DISORDER [None]
  - DYSPNOEA [None]
  - PULMONARY EMBOLISM [None]
